FAERS Safety Report 11793017 (Version 1)
Quarter: 2015Q4

REPORT INFORMATION
  Report Type: Report from Study
  Country: US (occurrence: US)
  Receive Date: 20151202
  Receipt Date: 20151202
  Transmission Date: 20160305
  Serious: Yes (Other)
  Sender: FDA-Public Use
  Company Number: US-MYLANLABS-2015M1041279

PATIENT

DRUGS (16)
  1. AVASTIN [Suspect]
     Active Substance: BEVACIZUMAB
     Indication: LUNG NEOPLASM MALIGNANT
     Dosage: Q 3 WEEKS
     Route: 042
     Dates: start: 201009
  2. ATORVASTATIN [Concomitant]
     Active Substance: ATORVASTATIN
     Dosage: UNK
  3. DOXAZOSIN [Concomitant]
     Active Substance: DOXAZOSIN\DOXAZOSIN MESYLATE
     Dosage: UNK
  4. PROCRIT [Concomitant]
     Active Substance: ERYTHROPOIETIN
     Dosage: UNK
  5. TARCEVA [Suspect]
     Active Substance: ERLOTINIB HYDROCHLORIDE
     Indication: LUNG NEOPLASM MALIGNANT
     Dosage: 150 MG, QD
     Route: 048
     Dates: start: 201402
  6. FUROSEMIDE. [Concomitant]
     Active Substance: FUROSEMIDE
     Dosage: UNK
  7. AVASTIN [Suspect]
     Active Substance: BEVACIZUMAB
     Dosage: NOT APPLICABLE
     Dates: start: 20111125, end: 201308
  8. ATENOLOL. [Concomitant]
     Active Substance: ATENOLOL
     Dosage: UNK
  9. LEVOTHROID [Concomitant]
     Active Substance: LEVOTHYROXINE SODIUM
     Dosage: UNK
  10. DILTIAZEM [Concomitant]
     Active Substance: DILTIAZEM
     Dosage: UNK
  11. PAROXETINE [Concomitant]
     Active Substance: PAROXETINE\PAROXETINE HYDROCHLORIDE
     Dosage: UNK
  12. LOSARTAN POTASSIUM. [Concomitant]
     Active Substance: LOSARTAN POTASSIUM
     Dosage: UNK
  13. PRADAXA [Concomitant]
     Active Substance: DABIGATRAN ETEXILATE MESYLATE
     Dosage: UNK
  14. ZOLPIDEM [Concomitant]
     Active Substance: ZOLPIDEM\ZOLPIDEM TARTRATE
     Dosage: UNK
  15. DIGOXIN. [Concomitant]
     Active Substance: DIGOXIN
     Dosage: UNK
  16. DOXYCYCLINE. [Suspect]
     Active Substance: DOXYCYCLINE
     Indication: LUNG NEOPLASM MALIGNANT
     Dosage: 200 MG
     Dates: start: 201402

REACTIONS (11)
  - Decreased appetite [Not Recovered/Not Resolved]
  - Oedema [Recovered/Resolved]
  - Gait disturbance [Not Recovered/Not Resolved]
  - Alopecia [Unknown]
  - Erythema [Recovered/Resolved]
  - Eye discharge [Unknown]
  - Pruritus [Unknown]
  - Dyspnoea [Not Recovered/Not Resolved]
  - Rash [Unknown]
  - Renal failure [Recovered/Resolved]
  - Haemorrhage [Not Recovered/Not Resolved]

NARRATIVE: CASE EVENT DATE: 201308
